FAERS Safety Report 22243197 (Version 1)
Quarter: 2023Q2

REPORT INFORMATION
  Report Type: Spontaneous
  Country: US (occurrence: None)
  Receive Date: 20230421
  Receipt Date: 20230421
  Transmission Date: 20230721
  Serious: Yes (Other)
  Sender: FDA-Public Use
  Company Number: None

PATIENT
  Age: 59 Year
  Sex: Female
  Weight: 101.7 kg

DRUGS (1)
  1. TRULICITY [Suspect]
     Active Substance: DULAGLUTIDE
     Indication: Type 2 diabetes mellitus
     Route: 030

REACTIONS (5)
  - Nausea [None]
  - Diarrhoea [None]
  - Feeding disorder [None]
  - Dehydration [None]
  - Therapy cessation [None]

NARRATIVE: CASE EVENT DATE: 20230407
